FAERS Safety Report 17709461 (Version 3)
Quarter: 2020Q3

REPORT INFORMATION
  Report Type: Report from Study
  Country: IT (occurrence: IT)
  Receive Date: 20200427
  Receipt Date: 20200810
  Transmission Date: 20201102
  Serious: Yes (Other)
  Sender: FDA-Public Use
  Company Number: IT-TEVA-2020-IT-1226593

PATIENT
  Age: 81 Year
  Sex: Male

DRUGS (3)
  1. MOXIFLOXACIN. [Suspect]
     Active Substance: MOXIFLOXACIN
     Indication: INTERVERTEBRAL DISCITIS
     Dosage: 400 MG
     Route: 048
     Dates: start: 20200122, end: 20200402
  2. RIFADIN [Suspect]
     Active Substance: RIFAMPIN
     Indication: INTERVERTEBRAL DISCITIS
     Dosage: 600 MG
     Route: 048
     Dates: start: 20200107, end: 20200402
  3. ISONIAZID. [Suspect]
     Active Substance: ISONIAZID
     Indication: INTERVERTEBRAL DISCITIS
     Dosage: 400 MG
     Route: 048
     Dates: start: 20200107, end: 20200402

REACTIONS (5)
  - Rash pruritic [Not Recovered/Not Resolved]
  - Drug reaction with eosinophilia and systemic symptoms [Not Recovered/Not Resolved]
  - Skin lesion [Not Recovered/Not Resolved]
  - Skin exfoliation [Not Recovered/Not Resolved]
  - Oedema peripheral [Not Recovered/Not Resolved]

NARRATIVE: CASE EVENT DATE: 20200330
